FAERS Safety Report 7959556-4 (Version None)
Quarter: 2011Q4

REPORT INFORMATION
  Report Type: 
  Country: None (occurrence: None)
  Receive Date: 20111206
  Receipt Date: 20111123
  Transmission Date: 20120403
  Serious: Yes (Death, Hospitalization)
  Sender: FDA-Public Use
  Company Number: DE-ROCHE-1016453

PATIENT
  Sex: Female
  Weight: 49 kg

DRUGS (8)
  1. PANTOPRAZOLE SODIUM [Concomitant]
     Indication: PROPHYLAXIS
     Route: 048
  2. ZOMETA [Concomitant]
     Indication: METASTASES TO BONE
     Route: 042
     Dates: start: 20090930, end: 20090930
  3. GRANISETRON [Concomitant]
     Indication: PROPHYLAXIS
     Route: 048
  4. DEXAMETHASONE SODIUM PHOSPHATE [Concomitant]
     Indication: PROPHYLAXIS
     Route: 048
  5. CIPROFLOXACIN [Concomitant]
     Indication: PYREXIA
     Route: 048
     Dates: start: 20091015, end: 20091019
  6. SPIRIVA [Concomitant]
     Indication: CHRONIC OBSTRUCTIVE PULMONARY DISEASE
     Route: 055
  7. XELODA [Suspect]
     Indication: BREAST CANCER METASTATIC
     Route: 048
     Dates: start: 20090930, end: 20091015
  8. MORPHINE [Concomitant]
     Indication: PAIN
     Route: 058

REACTIONS (7)
  - ANAEMIA [None]
  - FATIGUE [None]
  - HYPOTENSION [None]
  - DIZZINESS [None]
  - APPETITE DISORDER [None]
  - GENERAL PHYSICAL HEALTH DETERIORATION [None]
  - MULTI-ORGAN FAILURE [None]
